FAERS Safety Report 8424672-X (Version None)
Quarter: 2012Q2

REPORT INFORMATION
  Report Type: 
  Country: None (occurrence: None)
  Receive Date: 20120611
  Receipt Date: 20120601
  Transmission Date: 20120825
  Serious: Yes (Other)
  Sender: FDA-Public Use
  Company Number: FR-BIOGENIDEC-2012BI020051

PATIENT
  Age: 57 Year
  Sex: Female

DRUGS (3)
  1. ANTALGIC [Concomitant]
     Indication: PAIN
  2. TYSABRI [Suspect]
     Indication: MULTIPLE SCLEROSIS
     Route: 042
     Dates: start: 20070901
  3. VITAMIN D [Concomitant]

REACTIONS (1)
  - THYROID C-CELL HYPERPLASIA [None]
